FAERS Safety Report 9841428 (Version 1)
Quarter: 2014Q1

REPORT INFORMATION
  Report Type: Report from Study
  Country: US (occurrence: US)
  Receive Date: 20140124
  Receipt Date: 20140124
  Transmission Date: 20141002
  Serious: Yes (Hospitalization)
  Sender: FDA-Public Use
  Company Number: US-JNJFOC-20140111471

PATIENT
  Sex: Male
  Weight: 87.54 kg

DRUGS (5)
  1. REMICADE [Suspect]
     Indication: COLITIS ULCERATIVE
     Route: 042
  2. REMICADE [Suspect]
     Indication: COLITIS ULCERATIVE
     Route: 042
  3. REMICADE [Suspect]
     Indication: COLITIS ULCERATIVE
     Route: 042
     Dates: start: 20140109
  4. ASACOL [Suspect]
     Indication: COLITIS ULCERATIVE
     Route: 048
     Dates: end: 2013
  5. PREDNISONE [Concomitant]
     Indication: COLITIS ULCERATIVE
     Route: 048

REACTIONS (4)
  - Liver disorder [Unknown]
  - Renal disorder [Unknown]
  - Colitis ulcerative [Recovered/Resolved]
  - Diarrhoea [Unknown]
